FAERS Safety Report 4839855-5 (Version None)
Quarter: 2005Q4

REPORT INFORMATION
  Report Type: 
  Country: None (occurrence: None)
  Receive Date: 20051129
  Receipt Date: 20050623
  Transmission Date: 20060501
  Serious: Yes (Hospitalization, Disabling)
  Sender: FDA-Public Use
  Company Number: US-ROCHE-408868

PATIENT
  Age: 30 Year
  Sex: Female
  Weight: 60.8 kg

DRUGS (2)
  1. ACCUTANE [Suspect]
     Indication: ACNE
     Route: 048
     Dates: start: 20030815, end: 20030915
  2. ORAL CONTRACEPTIVE PILL [Concomitant]
     Route: 048

REACTIONS (10)
  - ALOPECIA [None]
  - COLITIS [None]
  - COLITIS ULCERATIVE [None]
  - GASTROINTESTINAL DISORDER [None]
  - INFLAMMATORY BOWEL DISEASE [None]
  - INTESTINAL HAEMORRHAGE [None]
  - IRRITABLE BOWEL SYNDROME [None]
  - LIP DRY [None]
  - MUSCULOSKELETAL STIFFNESS [None]
  - RECTAL HAEMORRHAGE [None]
